FAERS Safety Report 5007073-6 (Version None)
Quarter: 2006Q2

REPORT INFORMATION
  Report Type: 
  Country: None (occurrence: None)
  Receive Date: 20060519
  Receipt Date: 20060301
  Transmission Date: 20061013
  Serious: Yes (Hospitalization)
  Sender: FDA-Public Use
  Company Number: US-BOEHRINGER INGELHEIM PHARMACEUTICALS, INC.-2006-BP-02361BP

PATIENT
  Sex: Female
  Weight: 59.87 kg

DRUGS (7)
  1. SPIRIVA [Suspect]
     Indication: CHRONIC OBSTRUCTIVE PULMONARY DISEASE
     Route: 055
     Dates: start: 20050801
  2. SPIRIVA [Suspect]
     Indication: REVERSIBLE AIRWAYS OBSTRUCTION
     Route: 055
  3. SPIRIVA [Suspect]
     Route: 055
  4. ASMANEX [Concomitant]
  5. PROTONIX [Concomitant]
  6. XANAX [Concomitant]
  7. MAXZIDE [Concomitant]

REACTIONS (3)
  - CHRONIC OBSTRUCTIVE PULMONARY DISEASE [None]
  - CONDITION AGGRAVATED [None]
  - DRUG INEFFECTIVE [None]
